FAERS Safety Report 8000442-1 (Version None)
Quarter: 2011Q4

REPORT INFORMATION
  Report Type: 
  Country: None (occurrence: None)
  Receive Date: 20111222
  Receipt Date: 20110523
  Transmission Date: 20120403
  Serious: No
  Sender: FDA-Public Use
  Company Number: US-BRISTOL-MYERS SQUIBB COMPANY-15772056

PATIENT
  Age: 70 Year
  Sex: Male

DRUGS (3)
  1. ASACOL [Suspect]
     Indication: COLITIS ULCERATIVE
     Dosage: ASACOL 400MG TABS
     Route: 048
     Dates: start: 20000101
  2. MULTI-VITAMIN [Concomitant]
  3. PRAVACHOL [Suspect]
     Indication: BLOOD CHOLESTEROL INCREASED
     Route: 048
     Dates: start: 20110101

REACTIONS (2)
  - PYREXIA [None]
  - RASH [None]
